FAERS Safety Report 24950218 (Version 2)
Quarter: 2025Q1

REPORT INFORMATION
  Report Type: Spontaneous
  Country: IL (occurrence: IL)
  Receive Date: 20250210
  Receipt Date: 20250225
  Transmission Date: 20250409
  Serious: No
  Sender: ASTELLAS
  Company Number: IL-ASTELLAS-2025-AER-007236

PATIENT
  Sex: Male

DRUGS (2)
  1. PADCEV [Suspect]
     Active Substance: ENFORTUMAB VEDOTIN-EJFV
     Indication: Transitional cell carcinoma metastatic
     Route: 065
  2. KEYTRUDA [Suspect]
     Active Substance: PEMBROLIZUMAB
     Indication: Transitional cell carcinoma metastatic
     Route: 065

REACTIONS (3)
  - Proteinuria [Unknown]
  - Underdose [Unknown]
  - Off label use [Unknown]
